FAERS Safety Report 5280136-6 (Version None)
Quarter: 2007Q1

REPORT INFORMATION
  Report Type: 
  Country: None (occurrence: None)
  Receive Date: 20061215
  Receipt Date: 20060210
  Transmission Date: 20070707
  Serious: Yes (Death)
  Sender: FDA-Public Use
  Company Number: HQWYE769713FEB06

PATIENT
  Age: 46 Year
  Sex: Female
  Weight: 70.37 kg

DRUGS (2)
  1. EFFEXOR XR [Suspect]
     Indication: MAJOR DEPRESSION
     Dosage: 37.5 MG 1X PER 1 DAY
     Dates: start: 20040217
  2. ELAVIL [Concomitant]

REACTIONS (1)
  - COMPLETED SUICIDE [None]
